FAERS Safety Report 5342011-8 (Version None)
Quarter: 2007Q2

REPORT INFORMATION
  Report Type: 
  Country: None (occurrence: None)
  Receive Date: 20070601
  Receipt Date: 20070522
  Transmission Date: 20071010
  Serious: Yes (Hospitalization)
  Sender: FDA-Public Use
  Company Number: AR-AMGEN-US221521

PATIENT
  Sex: Female

DRUGS (9)
  1. PANITUMUMAB [Suspect]
     Indication: COLORECTAL CANCER
     Route: 042
     Dates: start: 20070419, end: 20070420
  2. OXALIPLATIN [Suspect]
     Route: 065
     Dates: start: 20070419
  3. FLUOROURACIL [Suspect]
     Route: 065
     Dates: start: 20070419
  4. LEUCOVORIN CALCIUM [Suspect]
     Route: 065
     Dates: start: 20070419
  5. COSOPT [Concomitant]
     Route: 065
     Dates: start: 20060401
  6. DEXAMETHASONE TAB [Concomitant]
     Route: 048
     Dates: start: 20070406, end: 20070423
  7. RANITIDINE [Concomitant]
     Route: 048
     Dates: start: 20070406, end: 20070423
  8. LACTULOSE [Concomitant]
     Route: 048
     Dates: start: 20070406, end: 20070421
  9. CODEINE PHOSPHATE AND ACETAMINOPHEN [Concomitant]
     Route: 048
     Dates: start: 20070416

REACTIONS (3)
  - BLOOD UREA INCREASED [None]
  - MUCOSAL INFLAMMATION [None]
  - PSEUDOMONAL SEPSIS [None]
